FAERS Safety Report 15204814 (Version 1)
Quarter: 2018Q3

REPORT INFORMATION
  Report Type: Spontaneous
  Country: GT (occurrence: GT)
  Receive Date: 20180726
  Receipt Date: 20180726
  Transmission Date: 20181010
  Serious: Yes (Other)
  Sender: FDA-Public Use
  Company Number: GT-MERCK KGAA-2052799

PATIENT
  Sex: Female

DRUGS (1)
  1. NOVOTHYROX [Suspect]
     Active Substance: LEVOTHYROXINE SODIUM
     Indication: HYPOTHYROIDISM

REACTIONS (8)
  - Angina pectoris [None]
  - Dyspnoea [None]
  - Nausea [None]
  - Feeling abnormal [None]
  - Treatment noncompliance [None]
  - Vascular pain [None]
  - Dizziness [None]
  - Choking sensation [None]
